FAERS Safety Report 7448943-9 (Version None)
Quarter: 2011Q2

REPORT INFORMATION
  Report Type: 
  Country: None (occurrence: None)
  Receive Date: 20110429
  Receipt Date: 20101018
  Transmission Date: 20111010
  Serious: No
  Sender: FDA-Public Use
  Company Number: US-ASTRAZENECA-2009SE12873

PATIENT
  Sex: Female

DRUGS (3)
  1. NEXIUM [Suspect]
     Indication: DYSPEPSIA
     Route: 048
  2. PRILOSEC [Suspect]
     Route: 048
  3. ZOLMITRIPTAN [Suspect]
     Indication: MIGRAINE
     Route: 048

REACTIONS (3)
  - DIZZINESS [None]
  - MIGRAINE [None]
  - DYSPEPSIA [None]
